FAERS Safety Report 16415101 (Version 1)
Quarter: 2019Q2

REPORT INFORMATION
  Report Type: Report from Study
  Country: None (occurrence: US)
  Receive Date: 20190611
  Receipt Date: 20190611
  Transmission Date: 20190711
  Serious: Yes (Hospitalization)
  Sender: FDA-Public Use
  Company Number: US-ABBVIE-19S-163-2732044-00

PATIENT
  Age: 36 Year
  Sex: Female
  Weight: 72.64 kg

DRUGS (1)
  1. CREON [Suspect]
     Active Substance: PANCRELIPASE AMYLASE\PANCRELIPASE LIPASE\PANCRELIPASE PROTEASE
     Indication: ALCOHOLIC PANCREATITIS
     Dosage: 2 CAPSULES WITH EACH MEAL
     Route: 048
     Dates: start: 20170901

REACTIONS (5)
  - Hallucination [Unknown]
  - Alcohol detoxification [Recovered/Resolved]
  - Dyspepsia [Recovered/Resolved]
  - Yellow skin [Recovering/Resolving]
  - Depression [Unknown]

NARRATIVE: CASE EVENT DATE: 20190220
